FAERS Safety Report 8478948 (Version 4)
Quarter: 2013Q3

REPORT INFORMATION
  Report Type: Spontaneous
  Country: US (occurrence: US)
  Receive Date: 20120327
  Receipt Date: 20130812
  Transmission Date: 20140515
  Serious: Yes (Hospitalization, Other)
  Sender: FDA-Public Use
  Company Number: US-JNJFOC-20120312026

PATIENT
  Age: 32 Year
  Sex: Female
  Weight: 65.77 kg

DRUGS (3)
  1. STELARA [Suspect]
     Indication: PSORIASIS
     Route: 058
     Dates: start: 20120210
  2. VITAMIN [Concomitant]
     Route: 065
  3. LOESTRIN [Concomitant]
     Route: 065

REACTIONS (4)
  - Staphylococcal infection [Unknown]
  - Furuncle [Recovered/Resolved]
  - Groin abscess [Recovered/Resolved]
  - Acne [Recovered/Resolved]
